FAERS Safety Report 9114344 (Version 1)
Quarter: 2013Q1

REPORT INFORMATION
  Report Type: Spontaneous
  Country: US (occurrence: US)
  Receive Date: 20130208
  Receipt Date: 20130208
  Transmission Date: 20140127
  Serious: Yes (Other)
  Sender: FDA-Public Use
  Company Number: US-ASTRAZENECA-2013SE07683

PATIENT
  Age: 60 Year
  Sex: Female
  Weight: 76.7 kg

DRUGS (3)
  1. ARIMIDEX [Suspect]
     Indication: BREAST CANCER
     Route: 048
     Dates: start: 201204
  2. LOSARTAN [Concomitant]
     Indication: HYPERTENSION
     Route: 048
  3. PRAVASTATIN [Concomitant]
     Indication: BLOOD CHOLESTEROL ABNORMAL
     Route: 048

REACTIONS (4)
  - Cataract [Recovered/Resolved]
  - Middle insomnia [Not Recovered/Not Resolved]
  - Arthralgia [Not Recovered/Not Resolved]
  - Nausea [Recovered/Resolved]
